FAERS Safety Report 7378966-X (Version None)
Quarter: 2011Q1

REPORT INFORMATION
  Report Type: 
  Country: None (occurrence: None)
  Receive Date: 20110324
  Receipt Date: 20110324
  Transmission Date: 20110831
  Serious: Yes (Other)
  Sender: FDA-Public Use
  Company Number: None

PATIENT
  Age: 43 Year
  Sex: Female

DRUGS (1)
  1. MANTOUX APLISOL [Suspect]
     Dosage: LEFT FOREARM

REACTIONS (2)
  - URTICARIA [None]
  - PRURITUS GENERALISED [None]
